FAERS Safety Report 21568281 (Version 1)
Quarter: 2022Q4

REPORT INFORMATION
  Report Type: Spontaneous
  Country: US (occurrence: US)
  Receive Date: 20221108
  Receipt Date: 20221108
  Transmission Date: 20230113
  Serious: Yes (Other)
  Sender: FDA-Public Use
  Company Number: US-PFIZER INC-202201279932

PATIENT
  Age: 76 Year
  Sex: Female

DRUGS (2)
  1. CARBOPLATIN [Suspect]
     Active Substance: CARBOPLATIN
     Dosage: UNK (TAKING HER SIXTH AND FINAL ROUND OF CARBOPLATIN SIX AND A HALF TO SEVEN WEEKS AGO)
     Dates: end: 2022
  2. TAXOL [Concomitant]
     Active Substance: PACLITAXEL
     Dosage: UNK
     Dates: end: 2022

REACTIONS (4)
  - Neuropathy peripheral [Unknown]
  - Taste disorder [Not Recovered/Not Resolved]
  - Injection site discomfort [Unknown]
  - Paraesthesia [Not Recovered/Not Resolved]
